FAERS Safety Report 8950570 (Version 2)
Quarter: 2013Q4

REPORT INFORMATION
  Report Type: Spontaneous
  Country: US (occurrence: US)
  Receive Date: 20121207
  Receipt Date: 20131205
  Transmission Date: 20140711
  Serious: Yes (Other)
  Sender: FDA-Public Use
  Company Number: US-BAYER-2012-127232

PATIENT
  Age: 28 Year
  Sex: Female

DRUGS (6)
  1. YAZ [Suspect]
     Indication: CONTRACEPTION
  2. YASMIN [Suspect]
     Indication: CONTRACEPTION
  3. OCELLA [Suspect]
     Indication: CONTRACEPTION
  4. AZITHROMYCIN [Concomitant]
     Dosage: 250 MG, UNK
  5. TUMS [CALCIUM CARBONATE] [Concomitant]
     Dosage: UNK
     Dates: start: 20100222
  6. PEPTO BISMOL [Concomitant]
     Dosage: UNK
     Dates: start: 20100222

REACTIONS (7)
  - Gallbladder disorder [None]
  - Cholelithiasis [None]
  - Cholecystitis acute [None]
  - Fear of disease [None]
  - Pain [None]
  - Pain [None]
  - Injury [None]
